FAERS Safety Report 13346721 (Version 1)
Quarter: 2017Q1

REPORT INFORMATION
  Report Type: Report from Study
  Country: DE (occurrence: DE)
  Receive Date: 20170317
  Receipt Date: 20170317
  Transmission Date: 20170428
  Serious: Yes (Death)
  Sender: FDA-Public Use
  Company Number: DE-SA-2017SA043139

PATIENT
  Age: 88 Year
  Sex: Male

DRUGS (1)
  1. MULTAQ [Suspect]
     Active Substance: DRONEDARONE
     Route: 048

REACTIONS (1)
  - Acute hepatic failure [Fatal]
